FAERS Safety Report 8067395-1 (Version None)
Quarter: 2011Q4

REPORT INFORMATION
  Report Type: 
  Country: None (occurrence: None)
  Receive Date: 20111221
  Receipt Date: 20111021
  Transmission Date: 20120403
  Serious: Yes (Other)
  Sender: FDA-Public Use
  Company Number: PHHY2011US08448

PATIENT
  Age: 61 Year
  Sex: Female

DRUGS (2)
  1. EXJADE [Suspect]
     Indication: DACRYOADENITIS ACQUIRED
     Dosage: 2000 MG, QD, ORAL
     Route: 048
     Dates: start: 20101201
  2. EXJADE [Suspect]
     Indication: IRON OVERLOAD
     Dosage: 2000 MG, QD, ORAL
     Route: 048
     Dates: start: 20101201

REACTIONS (1)
  - THROMBOCYTOPENIA [None]
